FAERS Safety Report 9165313 (Version 2)
Quarter: 2013Q1

REPORT INFORMATION
  Report Type: Spontaneous
  Country: JP (occurrence: JP)
  Receive Date: 20130315
  Receipt Date: 20130326
  Transmission Date: 20140127
  Serious: Yes (Congenital Anomaly, Other)
  Sender: FDA-Public Use
  Company Number: JP-BRISTOL-MYERS SQUIBB COMPANY-17472937

PATIENT
  Age: 1 Day
  Sex: 0

DRUGS (1)
  1. ABILIFY TABS [Suspect]
     Route: 064

REACTIONS (1)
  - Heart disease congenital [Unknown]
